FAERS Safety Report 8473813-7 (Version None)
Quarter: 2012Q2

REPORT INFORMATION
  Report Type: 
  Country: None (occurrence: None)
  Receive Date: 20120628
  Receipt Date: 20120214
  Transmission Date: 20120825
  Serious: Yes (Other)
  Sender: FDA-Public Use
  Company Number: US-MYLANLABS-2011S1024807

PATIENT
  Age: 55 Year
  Sex: Female

DRUGS (7)
  1. CLOZAPINE [Suspect]
     Route: 048
     Dates: start: 20110101, end: 20120103
  2. AMBIEN [Concomitant]
  3. GEODON [Concomitant]
  4. CLOZAPINE [Suspect]
     Indication: PSYCHOTIC DISORDER
     Route: 048
     Dates: start: 20111017, end: 20110101
  5. REMERON [Concomitant]
  6. KLONOPIN [Concomitant]
  7. CLOZAPINE [Suspect]
     Route: 048
     Dates: start: 20120106

REACTIONS (2)
  - GRANULOCYTOPENIA [None]
  - LEUKOPENIA [None]
